FAERS Safety Report 21321633 (Version 2)
Quarter: 2022Q4

REPORT INFORMATION
  Report Type: Spontaneous
  Country: DE (occurrence: DE)
  Receive Date: 20220912
  Receipt Date: 20221020
  Transmission Date: 20230113
  Serious: Yes (Other)
  Sender: FDA-Public Use
  Company Number: DE-CHIESI-2022CHF04552

PATIENT
  Sex: Male
  Weight: 67 kg

DRUGS (10)
  1. FERRIPROX [Suspect]
     Active Substance: DEFERIPRONE
     Indication: Thalassaemia
     Dosage: UNK, TID
     Route: 048
     Dates: start: 2019, end: 20220903
  2. HYDROXYUREA [Concomitant]
     Active Substance: HYDROXYUREA
     Indication: Thalassaemia
     Dosage: 1000 MILLIGRAM, QD
  3. PROPAFENONE [Concomitant]
     Active Substance: PROPAFENONE
     Indication: Cardiac failure
     Dosage: 150 MILLIGRAM, QD
  4. ELIQUIS [Concomitant]
     Active Substance: APIXABAN
     Indication: Coagulopathy
     Dosage: 10 MILLIGRAM, QD
  5. PAROXETINE [Concomitant]
     Active Substance: PAROXETINE
     Indication: Depression
     Dosage: 40 MILLIGRAM, QD
  6. PLAVIX [Concomitant]
     Active Substance: CLOPIDOGREL BISULFATE
     Indication: Coagulopathy
     Dosage: 25 MILLIGRAM, QD
  7. IVABRADINE [Concomitant]
     Active Substance: IVABRADINE
     Indication: Angina pectoris
     Dosage: 7.5 MILLIGRAM, QD
  8. CARVEDILOL [Concomitant]
     Active Substance: CARVEDILOL
     Indication: Hypertension
     Dosage: 6.25 MILLIGRAM, QD
  9. OMEPRAZOLE [Concomitant]
     Active Substance: OMEPRAZOLE
     Indication: Product used for unknown indication
     Dosage: 58 MILLIGRAM, QD
  10. CHOLECALCIFEROL [Concomitant]
     Active Substance: CHOLECALCIFEROL
     Indication: Vitamin supplementation
     Dosage: 2000 INTERNATIONAL UNIT, QD

REACTIONS (4)
  - Neuropathy peripheral [Recovered/Resolved]
  - Muscle twitching [Recovered/Resolved]
  - Arthralgia [Recovered/Resolved]
  - Facial nerve disorder [Recovered/Resolved]

NARRATIVE: CASE EVENT DATE: 20220801
